FAERS Safety Report 9778680 (Version 3)
Quarter: 2014Q2

REPORT INFORMATION
  Report Type: Spontaneous
  Country: US (occurrence: None)
  Receive Date: 20131219
  Receipt Date: 20140411
  Transmission Date: 20141212
  Serious: Yes (Hospitalization, Other)
  Sender: FDA-Public Use
  Company Number: 2013-US-004368

PATIENT
  Age: 53 Year
  Sex: Female

DRUGS (1)
  1. XYREM (SODIUM OXYBATE) ORAL SOLUTION, 500 MG/ML [Suspect]
     Indication: APNOEA
     Route: 048
     Dates: start: 200911

REACTIONS (3)
  - Wrist fracture [None]
  - Fall [None]
  - Off label use [None]
